FAERS Safety Report 8317585-5 (Version None)
Quarter: 2012Q2

REPORT INFORMATION
  Report Type: 
  Country: None (occurrence: None)
  Receive Date: 20120427
  Receipt Date: 20120206
  Transmission Date: 20120825
  Serious: No
  Sender: FDA-Public Use
  Company Number: US-GLAXOSMITHKLINE-A0964891A

PATIENT
  Age: 58 Year
  Sex: Female

DRUGS (1)
  1. ZOFRAN [Suspect]
     Route: 065

REACTIONS (1)
  - DRUG INEFFECTIVE [None]
